FAERS Safety Report 9228647 (Version 6)
Quarter: 2013Q2

REPORT INFORMATION
  Report Type: Report from Study
  Country: CA (occurrence: CA)
  Receive Date: 20130412
  Receipt Date: 20130608
  Transmission Date: 20140414
  Serious: Yes (Disabling, Other)
  Sender: FDA-Public Use
  Company Number: CA-ROCHE-1181337

PATIENT
  Age: 58 Year
  Sex: Male
  Weight: 82 kg

DRUGS (7)
  1. AVASTIN [Suspect]
     Indication: GLIOBLASTOMA
     Route: 042
     Dates: start: 20121106
  2. AVASTIN [Suspect]
     Route: 042
     Dates: start: 20130102
  3. KEPPRA [Concomitant]
  4. PROCHLORPERAZINE [Concomitant]
  5. TAXOL [Concomitant]
     Indication: CHEMOTHERAPY
     Route: 065
     Dates: end: 201303
  6. DEXAMETHASONE [Concomitant]
  7. LOMUSTINE [Concomitant]

REACTIONS (13)
  - Ataxia [Not Recovered/Not Resolved]
  - Balance disorder [Not Recovered/Not Resolved]
  - Cerebellar tumour [Unknown]
  - General physical health deterioration [Unknown]
  - Disease progression [Unknown]
  - Neoplasm [Unknown]
  - Injection site extravasation [Unknown]
  - Vascular fragility [Unknown]
  - Anxiety [Unknown]
  - Fatigue [Not Recovered/Not Resolved]
  - Nasopharyngitis [Recovered/Resolved]
  - Drug dose omission [Unknown]
  - Fall [Unknown]
